FAERS Safety Report 22146000 (Version 1)
Quarter: 2023Q1

REPORT INFORMATION
  Report Type: Report from Study
  Country: DE (occurrence: DE)
  Receive Date: 20230328
  Receipt Date: 20230328
  Transmission Date: 20230418
  Serious: Yes (Hospitalization)
  Sender: FDA-Public Use
  Company Number: DE-ELI_LILLY_AND_COMPANY-DE202211003333

PATIENT
  Age: 66 Year
  Sex: Female
  Weight: 54 kg

DRUGS (12)
  1. PIRTOBRUTINIB [Suspect]
     Active Substance: PIRTOBRUTINIB
     Indication: Breast cancer
     Dosage: 200 MG, DAILY
     Route: 065
     Dates: start: 20221031
  2. ACYCLOVIR [Concomitant]
     Active Substance: ACYCLOVIR
     Indication: Prophylaxis
     Dosage: UNK UNK, UNKNOWN
     Route: 065
     Dates: start: 20220901
  3. SULFAMETHOXAZOLE\TRIMETHOPRIM [Concomitant]
     Active Substance: SULFAMETHOXAZOLE\TRIMETHOPRIM
     Indication: Prophylaxis
     Dosage: UNK UNK, UNKNOWN
     Route: 065
     Dates: start: 20220901, end: 20221107
  4. LEVOTHYROXINE SODIUM [Concomitant]
     Active Substance: LEVOTHYROXINE SODIUM
     Indication: Hypothyroidism
     Dosage: UNK, UNKNOWN
     Route: 065
     Dates: start: 20220915
  5. OLANZAPINE [Concomitant]
     Active Substance: OLANZAPINE
     Indication: Nausea
     Dosage: UNK, UNKNOWN
     Route: 065
     Dates: start: 20221102
  6. HYDROMORPHONE [Concomitant]
     Active Substance: HYDROMORPHONE
     Indication: Abdominal pain
     Dosage: UNK, UNKNOWN
     Route: 065
     Dates: start: 20220901
  7. METOCLOPRAMIDE [Concomitant]
     Active Substance: METOCLOPRAMIDE
     Indication: Nausea
     Dosage: UNK, UNKNOWN
     Route: 065
     Dates: start: 20221102
  8. TRANEXAMIC ACID [Concomitant]
     Active Substance: TRANEXAMIC ACID
     Indication: Urinary bladder haemorrhage
     Dosage: UNK, UNKNOWN
     Route: 065
     Dates: start: 20221020
  9. IBRUTINIB [Concomitant]
     Active Substance: IBRUTINIB
     Indication: Breast cancer
     Dosage: UNK, UNKNOWN
     Route: 065
     Dates: start: 20220530
  10. VENETOCLAX [Concomitant]
     Active Substance: VENETOCLAX
     Indication: Breast cancer
     Dosage: UNK, UNKNOWN
     Route: 065
     Dates: start: 20220831
  11. RITUXIMAB [Concomitant]
     Active Substance: RITUXIMAB
     Indication: Breast cancer
     Dosage: UNK, UNKNOWN
     Route: 065
     Dates: start: 20220908
  12. RITUXIMAB [Concomitant]
     Active Substance: RITUXIMAB
     Dosage: UNK, UNKNOWN
     Route: 065
     Dates: start: 20221006

REACTIONS (2)
  - Tumour lysis syndrome [Not Recovered/Not Resolved]
  - Coombs negative haemolytic anaemia [Not Recovered/Not Resolved]

NARRATIVE: CASE EVENT DATE: 20221104
